FAERS Safety Report 10137992 (Version 3)
Quarter: 2014Q2

REPORT INFORMATION
  Report Type: Spontaneous
  Country: US (occurrence: US)
  Receive Date: 20140429
  Receipt Date: 20140623
  Transmission Date: 20141212
  Serious: Yes (Other)
  Sender: FDA-Public Use
  Company Number: US-JNJFOC-20140410739

PATIENT
  Age: 67 Year
  Sex: Female
  Weight: 61.69 kg

DRUGS (4)
  1. DURAGESIC [Suspect]
     Indication: PAIN
     Dosage: 100 UG/HR + 50 U/HR
     Route: 062
  2. DURAGESIC [Suspect]
     Indication: PAIN
     Route: 062
  3. DURAGESIC [Suspect]
     Indication: PAIN
     Route: 062
     Dates: start: 20140430
  4. OXYCODONE [Concomitant]
     Indication: BREAKTHROUGH PAIN
     Route: 062
     Dates: start: 2012

REACTIONS (12)
  - Spinal disorder [Unknown]
  - Brain hypoxia [Not Recovered/Not Resolved]
  - Drug prescribing error [Unknown]
  - Drug effect decreased [Unknown]
  - Body height decreased [Not Recovered/Not Resolved]
  - Breakthrough pain [Not Recovered/Not Resolved]
  - Product quality issue [Unknown]
  - Wrong technique in drug usage process [Recovered/Resolved]
  - Wrong technique in drug usage process [Unknown]
  - Product quality issue [Unknown]
  - Wrong technique in drug usage process [Not Recovered/Not Resolved]
  - Muscle spasms [Recovered/Resolved]
